FAERS Safety Report 4275986-9 (Version None)
Quarter: 2004Q1

REPORT INFORMATION
  Report Type: 
  Country: None (occurrence: None)
  Receive Date: 20040121
  Receipt Date: 20030512
  Transmission Date: 20041129
  Serious: No
  Sender: FDA-Public Use
  Company Number: US-GLAXOSMITHKLINE-A0408410A

PATIENT
  Age: 78 Year
  Sex: Female

DRUGS (3)
  1. VALTREX [Suspect]
     Dosage: 500MG TWICE PER DAY
     Route: 048
     Dates: start: 20030509, end: 20030511
  2. TUMS [Suspect]
     Indication: GASTRITIS
     Route: 048
     Dates: start: 20030512
  3. MAALOX [Concomitant]
     Indication: CONSTIPATION

REACTIONS (5)
  - ABDOMINAL PAIN [None]
  - CONSTIPATION [None]
  - DRUG INEFFECTIVE [None]
  - GASTRITIS [None]
  - URINARY TRACT INFECTION [None]
